FAERS Safety Report 16768826 (Version 3)
Quarter: 2021Q1

REPORT INFORMATION
  Report Type: Spontaneous
  Country: US (occurrence: US)
  Receive Date: 20190903
  Receipt Date: 20210204
  Transmission Date: 20210419
  Serious: Yes (Other)
  Sender: FDA-Public Use
  Company Number: US-SA-2019SA240331

PATIENT
  Age: 71 Year
  Sex: Female

DRUGS (8)
  1. BONIVA [Concomitant]
     Active Substance: IBANDRONATE SODIUM
  2. CITRACAL?D [Concomitant]
     Active Substance: CALCIUM CITRATE\CHOLECALCIFEROL
  3. PRESERVISION [Concomitant]
     Active Substance: MINERALS\VITAMINS
  4. ASPIRIN 81 [Concomitant]
     Active Substance: ASPIRIN
  5. LISINOPRIL. [Concomitant]
     Active Substance: LISINOPRIL
  6. LUTEIN [ZEAXANTHIN] [Concomitant]
     Active Substance: ZEAXANTHIN
  7. DUPIXENT [Suspect]
     Active Substance: DUPILUMAB
     Indication: PRODUCT USED FOR UNKNOWN INDICATION
     Dosage: 300 MG, QOW
     Route: 058
     Dates: start: 20181120
  8. SIMVASTATIN. [Concomitant]
     Active Substance: SIMVASTATIN

REACTIONS (4)
  - Cerebrovascular accident [Unknown]
  - Pruritus [Recovered/Resolved]
  - Therapeutic response decreased [Recovered/Resolved]
  - Speech disorder [Unknown]

NARRATIVE: CASE EVENT DATE: 20190710
